FAERS Safety Report 9138222 (Version 2)
Quarter: 2013Q1

REPORT INFORMATION
  Report Type: Spontaneous
  Country: BR (occurrence: BR)
  Receive Date: 20130305
  Receipt Date: 20130315
  Transmission Date: 20140127
  Serious: Yes (Hospitalization, Other)
  Sender: FDA-Public Use
  Company Number: BR-AMGEN-BRASP2013014145

PATIENT
  Age: 80 Year
  Sex: Male
  Weight: 54 kg

DRUGS (1)
  1. VECTIBIX [Suspect]
     Indication: PRODUCT USED FOR UNKNOWN INDICATION
     Dosage: UNK

REACTIONS (4)
  - Cerebrovascular accident [Unknown]
  - Disorientation [Unknown]
  - Dyspnoea [Unknown]
  - Chest pain [Unknown]
